FAERS Safety Report 10100955 (Version 2)
Quarter: 2014Q2

REPORT INFORMATION
  Report Type: Report from Study
  Country: AU (occurrence: AU)
  Receive Date: 20140424
  Receipt Date: 20140424
  Transmission Date: 20141212
  Serious: Yes (Other)
  Sender: FDA-Public Use
  Company Number: AU-ACCORD-023263

PATIENT
  Age: 68 Year
  Sex: Male

DRUGS (2)
  1. GEMCITABINE/GEMCITABINE HYDROCHLORIDE [Suspect]
     Indication: PANCREATIC CARCINOMA METASTATIC
     Dosage: C4, D15 GEMCITABINE 1G/M2, ?D1,8,15 Q28D (DOSE REDUCED TO 75 %); 11 DAYS
  2. PREDNISOLONE [Suspect]
     Indication: PANCREATIC CARCINOMA METASTATIC
     Dosage: DOSE WITHIN 30 DAYS OF PJP

REACTIONS (1)
  - Pneumocystis jirovecii pneumonia [Recovering/Resolving]
